FAERS Safety Report 5247267-8 (Version None)
Quarter: 2007Q1

REPORT INFORMATION
  Report Type: 
  Country: None (occurrence: None)
  Receive Date: 20070227
  Receipt Date: 20070212
  Transmission Date: 20070707
  Serious: Yes (Hospitalization)
  Sender: FDA-Public Use
  Company Number: PHBS2007ES02683

PATIENT
  Age: 75 Year
  Sex: Female

DRUGS (2)
  1. OXCARBAZEPINE [Suspect]
  2. HYDROCHLOROTHIAZIDE [Suspect]

REACTIONS (2)
  - DRUG INTERACTION POTENTIATION [None]
  - HYPONATRAEMIA [None]
